FAERS Safety Report 11444595 (Version 1)
Quarter: 2015Q3

REPORT INFORMATION
  Report Type: Spontaneous
  Country: US (occurrence: US)
  Receive Date: 20150902
  Receipt Date: 20150902
  Transmission Date: 20151125
  Serious: Yes (Other)
  Sender: FDA-Public Use
  Company Number: US-BAYER-2015-408577

PATIENT
  Age: 69 Year
  Sex: Male

DRUGS (1)
  1. ACETYLSALICYLIC ACID({=100 MG) [Suspect]
     Active Substance: ASPIRIN
     Indication: ARTHRALGIA

REACTIONS (4)
  - Small intestinal haemorrhage [Recovered/Resolved]
  - Normochromic normocytic anaemia [Unknown]
  - Oesophagitis [Unknown]
  - Labelled drug-drug interaction medication error [None]
